FAERS Safety Report 4973714-2 (Version None)
Quarter: 2006Q2

REPORT INFORMATION
  Report Type: 
  Country: None (occurrence: None)
  Receive Date: 20060414
  Receipt Date: 20051021
  Transmission Date: 20061013
  Serious: Yes (Death, Hospitalization)
  Sender: FDA-Public Use
  Company Number: US-MERCK-0510USA08722

PATIENT
  Age: 59 Year
  Sex: Female
  Weight: 52 kg

DRUGS (13)
  1. VIOXX [Suspect]
     Indication: ARTHRITIS
     Route: 048
     Dates: start: 19990601, end: 20011015
  2. CALAN [Concomitant]
     Route: 048
  3. TENORMIN [Concomitant]
     Route: 065
  4. LANOXIN [Concomitant]
     Route: 065
  5. ATIVAN [Concomitant]
     Route: 065
  6. NITRO-BID [Concomitant]
     Route: 065
  7. COUMADIN [Concomitant]
     Route: 065
  8. COUMADIN [Concomitant]
     Route: 065
  9. VERAPAMIL [Concomitant]
     Route: 065
  10. PREMARIN [Concomitant]
     Route: 065
  11. ASPIRIN [Concomitant]
     Route: 065
  12. LASIX [Concomitant]
     Route: 065
  13. LORAZEPAM [Concomitant]
     Route: 065

REACTIONS (11)
  - ABDOMINAL PAIN [None]
  - AORTIC VALVE DISEASE [None]
  - ARTERIOSCLEROSIS CORONARY ARTERY [None]
  - ATRIAL FIBRILLATION [None]
  - CHEST DISCOMFORT [None]
  - CYANOSIS [None]
  - DYSPNOEA [None]
  - EPIGASTRIC DISCOMFORT [None]
  - MITRAL VALVE DISEASE [None]
  - RECTAL HAEMORRHAGE [None]
  - RHEUMATIC HEART DISEASE [None]
